FAERS Safety Report 20475173 (Version 1)
Quarter: 2022Q1

REPORT INFORMATION
  Report Type: Spontaneous
  Country: CA (occurrence: CA)
  Receive Date: 20220215
  Receipt Date: 20220215
  Transmission Date: 20220424
  Serious: Yes (Other)
  Sender: FDA-Public Use
  Company Number: CA-HLS-202200276

PATIENT
  Sex: Female

DRUGS (19)
  1. CLOZAPINE [Suspect]
     Active Substance: CLOZAPINE
     Indication: Product used for unknown indication
     Route: 065
  2. ACETAMINOPHEN\CAFFEINE [Suspect]
     Active Substance: ACETAMINOPHEN\CAFFEINE
     Indication: Pain
     Route: 065
  3. ACETAMINOPHEN\CAFFEINE [Suspect]
     Active Substance: ACETAMINOPHEN\CAFFEINE
     Indication: Pyrexia
     Route: 065
  4. ALUMINUM HYDROXIDE\DIMETHICONE\MAGNESIUM HYDROXIDE [Suspect]
     Active Substance: ALUMINUM HYDROXIDE\DIMETHICONE\MAGNESIUM HYDROXIDE
     Indication: Abdominal discomfort
     Route: 065
  5. ACETAMINOPHEN\CARBINOXAMINE MALEATE\PENTOXYVERINE CITRATE\PHENYLEPHRIN [Suspect]
     Active Substance: ACETAMINOPHEN\CARBINOXAMINE MALEATE\PENTOXYVERINE CITRATE\PHENYLEPHRINE HYDROCHLORIDE
     Indication: Product used for unknown indication
     Route: 065
  6. ZOPICLONE [Suspect]
     Active Substance: ZOPICLONE
     Indication: Insomnia
     Route: 065
  7. DIVALPROEX SODIUM [Suspect]
     Active Substance: DIVALPROEX SODIUM
     Indication: Product used for unknown indication
     Route: 065
  8. REXULTI [Suspect]
     Active Substance: BREXPIPRAZOLE
     Indication: Product used for unknown indication
     Route: 065
  9. RANITIDINE HYDROCHLORIDE [Suspect]
     Active Substance: RANITIDINE HYDROCHLORIDE
     Indication: Product used for unknown indication
     Route: 065
  10. PREMARIN WITH METHYLTESTOSTERONE [Suspect]
     Active Substance: ESTROGENS, CONJUGATED\METHYLTESTOSTERONE
     Indication: Product used for unknown indication
     Route: 065
  11. OLANZAPINE [Suspect]
     Active Substance: OLANZAPINE
     Indication: Mood altered
     Route: 065
  12. OLANZAPINE [Suspect]
     Active Substance: OLANZAPINE
     Indication: Mood altered
     Route: 065
  13. LEVOTHYROXINE SODIUM [Suspect]
     Active Substance: LEVOTHYROXINE SODIUM
     Indication: Product used for unknown indication
     Route: 065
  14. INFLUENZA VIRUS VACCINE [Suspect]
     Active Substance: INFLUENZA VIRUS VACCINE
     Indication: Product used for unknown indication
     Route: 065
  15. ESTRADIOL [Suspect]
     Active Substance: ESTRADIOL
     Indication: Product used for unknown indication
     Route: 067
  16. CONJUGATED ESTROGENS [Suspect]
     Active Substance: ESTROGENS, CONJUGATED
     Indication: Product used for unknown indication
     Route: 061
  17. CHOLECALCIFEROL [Suspect]
     Active Substance: CHOLECALCIFEROL
     Indication: Product used for unknown indication
     Route: 065
  18. ARIPIPRAZOLE [Suspect]
     Active Substance: ARIPIPRAZOLE
     Indication: Product used for unknown indication
     Route: 065
  19. AMLODIPINE BESYLATE [Suspect]
     Active Substance: AMLODIPINE BESYLATE
     Indication: Product used for unknown indication
     Route: 065

REACTIONS (4)
  - Drug interaction [Unknown]
  - Drug level increased [Unknown]
  - Electrocardiogram QT prolonged [Unknown]
  - Schizoaffective disorder [Unknown]
